FAERS Safety Report 11004661 (Version 3)
Quarter: 2015Q3

REPORT INFORMATION
  Report Type: Spontaneous
  Country: US (occurrence: US)
  Receive Date: 20150409
  Receipt Date: 20150716
  Transmission Date: 20151125
  Serious: Yes (Death, Hospitalization, Other)
  Sender: FDA-Public Use
  Company Number: US-009507513-1504USA003793

PATIENT
  Sex: Female
  Weight: 63.5 kg

DRUGS (1)
  1. JANUVIA [Suspect]
     Active Substance: SITAGLIPTIN PHOSPHATE
     Indication: TYPE 2 DIABETES MELLITUS
     Dosage: 100 MG, EVERY MORNING
     Route: 048
     Dates: start: 20080722, end: 20130502

REACTIONS (14)
  - Atrial fibrillation [Unknown]
  - Abdominal pain [Unknown]
  - Diarrhoea [Unknown]
  - Anaemia [Unknown]
  - Hypertension [Unknown]
  - Gastrooesophageal reflux disease [Unknown]
  - Hyponatraemia [Unknown]
  - Dyslipidaemia [Unknown]
  - Myocardial infarction [Unknown]
  - Obesity [Unknown]
  - Coagulopathy [Unknown]
  - Pancreatic carcinoma [Fatal]
  - Hypoacusis [Unknown]
  - Hypovolaemia [Unknown]

NARRATIVE: CASE EVENT DATE: 20101117
